FAERS Safety Report 17606877 (Version 2)
Quarter: 2020Q2

REPORT INFORMATION
  Report Type: Spontaneous
  Country: US (occurrence: US)
  Receive Date: 20200331
  Receipt Date: 20200402
  Transmission Date: 20200713
  Serious: No
  Sender: FDA-Public Use
  Company Number: US-009507513-2003USA010963

PATIENT
  Age: 91 Year
  Sex: Female

DRUGS (1)
  1. ASMANEX [Suspect]
     Active Substance: MOMETASONE FUROATE
     Dosage: UNK
     Route: 055
     Dates: start: 2013

REACTIONS (5)
  - Poor quality device used [Unknown]
  - Adverse event [Unknown]
  - Product dose omission [Unknown]
  - Product quality issue [Unknown]
  - Respiration abnormal [Unknown]
